FAERS Safety Report 8720714 (Version 4)
Quarter: 2013Q3

REPORT INFORMATION
  Report Type: Spontaneous
  Country: ES (occurrence: ES)
  Receive Date: 20120813
  Receipt Date: 20130703
  Transmission Date: 20140515
  Serious: Yes (Other)
  Sender: FDA-Public Use
  Company Number: ES-JNJFOC-20120802917

PATIENT
  Sex: Male

DRUGS (12)
  1. XEPLION [Suspect]
     Indication: PSYCHOTIC DISORDER
     Route: 030
  2. XEPLION [Suspect]
     Indication: PSYCHOTIC DISORDER
     Route: 030
  3. XEPLION [Suspect]
     Indication: PSYCHOTIC DISORDER
     Route: 030
  4. XEPLION [Suspect]
     Indication: PSYCHOTIC DISORDER
     Route: 030
  5. RISPERDAL CONSTA [Suspect]
     Indication: PSYCHOTIC DISORDER
     Route: 030
  6. RISPERDAL CONSTA [Suspect]
     Indication: PSYCHOTIC DISORDER
     Route: 030
  7. TOPAMAX [Suspect]
     Indication: PRODUCT USED FOR UNKNOWN INDICATION
     Route: 048
     Dates: end: 2011
  8. TOPAMAX [Suspect]
     Indication: PRODUCT USED FOR UNKNOWN INDICATION
     Route: 048
     Dates: start: 2011
  9. AKINETON [Concomitant]
     Indication: PRODUCT USED FOR UNKNOWN INDICATION
     Route: 065
  10. CITALOPRAM [Concomitant]
     Indication: PRODUCT USED FOR UNKNOWN INDICATION
     Route: 065
  11. LYRICA [Concomitant]
     Indication: PRODUCT USED FOR UNKNOWN INDICATION
     Route: 065
  12. SEROQUEL [Concomitant]
     Indication: PRODUCT USED FOR UNKNOWN INDICATION

REACTIONS (17)
  - Weight increased [Not Recovered/Not Resolved]
  - Dyskinesia [Not Recovered/Not Resolved]
  - Muscle rigidity [Recovered/Resolved]
  - Amnesia [Recovered/Resolved]
  - Headache [Recovered/Resolved]
  - Oculogyric crisis [Recovered/Resolved]
  - Akathisia [Not Recovered/Not Resolved]
  - Paranoia [Recovered/Resolved]
  - Fatigue [Not Recovered/Not Resolved]
  - Insomnia [Recovered/Resolved]
  - Sluggishness [Recovered/Resolved]
  - Anxiety [Recovered/Resolved]
  - Anxiety [Recovered/Resolved]
  - Adverse event [Recovered/Resolved]
  - Sleep terror [Recovered/Resolved]
  - Photophobia [Not Recovered/Not Resolved]
  - Blood testosterone decreased [Not Recovered/Not Resolved]
